FAERS Safety Report 8837332 (Version 1)
Quarter: 2012Q4

REPORT INFORMATION
  Report Type: 
  Country: IT (occurrence: IT)
  Receive Date: 20121012
  Receipt Date: 20121012
  Transmission Date: 20130627
  Serious: Yes (Hospitalization)
  Sender: FDA-Public Use
  Company Number: IT-ALLERGAN-1213893US

PATIENT
  Age: 50 Year
  Sex: Female

DRUGS (1)
  1. EXOCIN [Suspect]
     Indication: CORNEAL EXFOLIATION
     Dosage: 3 posologic units daily
     Route: 047
     Dates: start: 20120914, end: 20120916

REACTIONS (3)
  - Corneal exfoliation [Recovering/Resolving]
  - Eye pain [Recovering/Resolving]
  - Eye pruritus [Recovering/Resolving]
